FAERS Safety Report 18597434 (Version 1)
Quarter: 2020Q4

REPORT INFORMATION
  Report Type: Spontaneous
  Country: US (occurrence: US)
  Receive Date: 20201209
  Receipt Date: 20201209
  Transmission Date: 20210114
  Serious: No
  Sender: FDA-Public Use
  Company Number: US-IBSA PHARMA INC.-2020IBS000190

PATIENT

DRUGS (1)
  1. TIROSINT [Suspect]
     Active Substance: LEVOTHYROXINE SODIUM
     Indication: HYPOTHYROIDISM
     Dosage: 125 ?G, QD
     Route: 048
     Dates: start: 202007, end: 20200902

REACTIONS (8)
  - Confusional state [Recovering/Resolving]
  - Dyspnoea [Not Recovered/Not Resolved]
  - Mood swings [Recovering/Resolving]
  - Alopecia [Recovering/Resolving]
  - Chest pain [Recovering/Resolving]
  - Dizziness [Recovering/Resolving]
  - Disturbance in attention [Recovering/Resolving]
  - Intentional product use issue [Unknown]

NARRATIVE: CASE EVENT DATE: 202007
